FAERS Safety Report 11787066 (Version 2)
Quarter: 2015Q4

REPORT INFORMATION
  Report Type: Spontaneous
  Country: JP (occurrence: JP)
  Receive Date: 20151130
  Receipt Date: 20151230
  Transmission Date: 20160305
  Serious: Yes (Hospitalization)
  Sender: FDA-Public Use
  Company Number: JP-SA-2015SA190111

PATIENT
  Age: 74 Year
  Sex: Male
  Weight: 56.9 kg

DRUGS (10)
  1. ARTIST [Concomitant]
     Active Substance: CARVEDILOL
     Indication: CARDIAC FAILURE
     Route: 048
     Dates: start: 20140920, end: 20141025
  2. NEXIUM [Suspect]
     Active Substance: ESOMEPRAZOLE MAGNESIUM
     Indication: PROPHYLAXIS
     Route: 048
     Dates: start: 20140912, end: 20141025
  3. DIART [Concomitant]
     Active Substance: AZOSEMIDE
     Indication: CARDIAC FAILURE
     Route: 048
     Dates: start: 20140912, end: 20141025
  4. NICORANDIL [Concomitant]
     Active Substance: NICORANDIL
  5. TRAZENTA [Concomitant]
     Active Substance: LINAGLIPTIN
     Route: 048
  6. SPIRONOLACTONE. [Concomitant]
     Active Substance: SPIRONOLACTONE
     Indication: CARDIAC FAILURE
     Route: 048
     Dates: start: 20140912, end: 20141025
  7. COMPLAVIN [Suspect]
     Active Substance: ASPIRIN\CLOPIDOGREL BISULFATE
     Route: 048
     Dates: start: 20140912, end: 20141025
  8. IMIDAPRIL [Concomitant]
     Active Substance: IMIDAPRIL
     Indication: HYPERTENSION
     Route: 048
     Dates: start: 20140912, end: 20141025
  9. PLAVIX [Suspect]
     Active Substance: CLOPIDOGREL BISULFATE
     Route: 048
     Dates: start: 201409, end: 20141025
  10. LIPITOR [Suspect]
     Active Substance: ATORVASTATIN CALCIUM
     Indication: ANGINA UNSTABLE
     Route: 048
     Dates: start: 20140912, end: 20141025

REACTIONS (10)
  - Pyrexia [Recovering/Resolving]
  - Decreased appetite [Recovering/Resolving]
  - Malaise [Recovering/Resolving]
  - Jaundice [Recovering/Resolving]
  - Nausea [Recovering/Resolving]
  - Altered state of consciousness [Recovering/Resolving]
  - Drug-induced liver injury [Recovering/Resolving]
  - Hepatomegaly [Recovering/Resolving]
  - Asthenia [Recovering/Resolving]
  - Vomiting [Recovering/Resolving]

NARRATIVE: CASE EVENT DATE: 20141025
